FAERS Safety Report 6747996-0 (Version None)
Quarter: 2010Q2

REPORT INFORMATION
  Report Type: 
  Country: None (occurrence: None)
  Receive Date: 20100528
  Receipt Date: 20100521
  Transmission Date: 20101027
  Serious: Yes (Hospitalization, Other)
  Sender: FDA-Public Use
  Company Number: US-AMGEN-KDL414604

PATIENT
  Sex: Female

DRUGS (1)
  1. ENBREL [Suspect]
     Indication: RHEUMATOID ARTHRITIS
     Route: 058
     Dates: start: 20091120, end: 20100320

REACTIONS (8)
  - BACK PAIN [None]
  - CEREBROVASCULAR ACCIDENT [None]
  - DEPRESSION [None]
  - HALLUCINATION [None]
  - INSOMNIA [None]
  - MENTAL IMPAIRMENT [None]
  - MUSCULOSKELETAL PAIN [None]
  - MYOCARDIAL INFARCTION [None]
